FAERS Safety Report 5744662-5 (Version None)
Quarter: 2008Q2

REPORT INFORMATION
  Report Type: 
  Country: None (occurrence: None)
  Receive Date: 20080516
  Receipt Date: 20080512
  Transmission Date: 20081010
  Serious: Yes (Hospitalization)
  Sender: FDA-Public Use
  Company Number: A0727591A

PATIENT
  Age: 61 Year
  Sex: Female

DRUGS (9)
  1. CALCIUM CARBONATE TABLET TROPICAL ASSORTED FRUIT (CALCIUM CARBONATE) [Suspect]
     Indication: DYSPEPSIA
     Dosage: ORAL
     Route: 048
  2. CALCIUM CARBONATE TABLET PEPPERMINT (CALCIUM CARBONATE) [Suspect]
     Indication: DYSPEPSIA
     Dosage: ORAL
     Route: 048
  3. PROMETHAZINE [Suspect]
     Dosage: 2 MG
  4. BLOOD PRESSURE MEDICATION (FORMULATION UNKNOWN) (BLOOD PRESSURE MEDICA [Suspect]
  5. SUCRALFATE [Concomitant]
  6. GABAPENTIN [Concomitant]
  7. CLONAZEPAM [Concomitant]
  8. KETOROLAC TROMETAMOL [Concomitant]
  9. ATENOLOL [Concomitant]

REACTIONS (12)
  - BLOOD CALCIUM INCREASED [None]
  - BLOOD POTASSIUM DECREASED [None]
  - CONFUSIONAL STATE [None]
  - DEHYDRATION [None]
  - DYSPEPSIA [None]
  - HYPERTENSION [None]
  - MALAISE [None]
  - ORAL INTAKE REDUCED [None]
  - POLLAKIURIA [None]
  - RENAL DISORDER [None]
  - STOMACH DISCOMFORT [None]
  - URINE OUTPUT DECREASED [None]
